FAERS Safety Report 7970957-0 (Version None)
Quarter: 2011Q4

REPORT INFORMATION
  Report Type: 
  Country: None (occurrence: None)
  Receive Date: 20111212
  Receipt Date: 20111202
  Transmission Date: 20120403
  Serious: Yes (Other)
  Sender: FDA-Public Use
  Company Number: FR-BRISTOL-MYERS SQUIBB COMPANY-16272635

PATIENT
  Age: 59 Year
  Sex: Female

DRUGS (8)
  1. VALACICLOVIR [Concomitant]
     Indication: HERPES ZOSTER
     Route: 048
     Dates: start: 20111006
  2. HERCEPTIN [Suspect]
     Indication: BREAST CANCER METASTATIC
     Dates: start: 20110929
  3. LISINOPRIL [Concomitant]
     Dosage: LISINOPRIL ANHYDROUS 5 MG
     Route: 048
     Dates: start: 20110928
  4. AMITRIPTYLINE HCL [Concomitant]
     Indication: NEURALGIA
     Dosage: LAROXYL ROCHE (AMITRIPTYLINE HYDROCHLORIDE) 40 DROPS DAILY ORALLY
     Route: 048
     Dates: start: 20110915
  5. TAXOL [Suspect]
     Indication: BREAST CANCER METASTATIC
     Route: 042
     Dates: start: 20110929
  6. OXYCONTIN [Concomitant]
     Dosage: ER FILM-COATED TABLET (OXYCODONE) ONE TABLET DAILY
     Route: 048
     Dates: start: 20110915
  7. ZOLPIDEM [Concomitant]
     Dosage: STILNOX 10 MG, SCORED FILM-COATED TABLET (ZOLPIDEM) ONE TABLET DAILY
     Route: 048
  8. BISOPROLOL FUMARATE [Suspect]
     Dosage: CARDENSIEL 1.25 MG, FILM-COATED TABLET (BISOPROLOL) ONE TABLET DAILY
     Route: 048
     Dates: start: 20110928

REACTIONS (3)
  - CARDIAC DISORDER [None]
  - ANGINA PECTORIS [None]
  - EJECTION FRACTION DECREASED [None]
